FAERS Safety Report 10058468 (Version 4)
Quarter: 2015Q2

REPORT INFORMATION
  Report Type: Spontaneous
  Country: SE (occurrence: None)
  Receive Date: 20140402
  Receipt Date: 20150429
  Transmission Date: 20150821
  Serious: Yes (Death)
  Sender: FDA-Public Use
  Company Number: 2262604

PATIENT
  Age: 69 Year
  Sex: Female

DRUGS (11)
  1. PACLITAXEL. [Suspect]
     Active Substance: PACLITAXEL
     Indication: BREAST CANCER
     Route: 042
     Dates: start: 20140317, end: 20140317
  2. CALCICHEW D3 [Concomitant]
     Active Substance: CALCIUM\CHOLECALCIFEROL
  3. TERRACORTRIL MED POLYMYXIN B [Concomitant]
  4. PANTOLOC /01263204/ [Concomitant]
  5. LASIX [Concomitant]
     Active Substance: FUROSEMIDE
  6. LANTUS [Concomitant]
     Active Substance: INSULIN GLARGINE
  7. ALVEDON [Concomitant]
     Active Substance: ACETAMINOPHEN
  8. LOSARTAN [Concomitant]
     Active Substance: LOSARTAN
  9. KALEORID [Concomitant]
     Active Substance: POTASSIUM CHLORIDE
  10. INSULIN [Concomitant]
     Active Substance: INSULIN NOS
  11. BETAPRED [Concomitant]
     Active Substance: BETAMETHASONE SODIUM PHOSPHATE

REACTIONS (3)
  - Cardiac arrest [None]
  - Anaphylactic reaction [None]
  - Death [None]

NARRATIVE: CASE EVENT DATE: 20140317
